FAERS Safety Report 11746552 (Version 2)
Quarter: 2015Q4

REPORT INFORMATION
  Report Type: Report from Study
  Country: PK (occurrence: PK)
  Receive Date: 20151117
  Receipt Date: 20151224
  Transmission Date: 20160304
  Serious: Yes (Death, Hospitalization, Other)
  Sender: FDA-Public Use
  Company Number: PK-INCYTE CORPORATION-2015IN005973

PATIENT
  Age: 39 Year
  Sex: Male
  Weight: 49 kg

DRUGS (2)
  1. JAKAFI [Suspect]
     Active Substance: RUXOLITINIB
     Indication: PRIMARY MYELOFIBROSIS
     Dosage: 25 MG, BID
     Route: 048
     Dates: start: 20141231
  2. JAKAFI [Suspect]
     Active Substance: RUXOLITINIB
     Dosage: UNK
     Route: 048
     Dates: start: 20150327, end: 20151029

REACTIONS (11)
  - Pulse absent [Unknown]
  - General physical health deterioration [Unknown]
  - Acute kidney injury [Unknown]
  - Platelet count decreased [Unknown]
  - Renal impairment [Unknown]
  - Anaemia [Unknown]
  - Haemodynamic instability [Not Recovered/Not Resolved]
  - Sepsis [Fatal]
  - Cardio-respiratory arrest [Fatal]
  - Diarrhoea [Not Recovered/Not Resolved]
  - Polyuria [Unknown]

NARRATIVE: CASE EVENT DATE: 20151029
